FAERS Safety Report 9332084 (Version 1)
Quarter: 2013Q2

REPORT INFORMATION
  Report Type: Spontaneous
  Country: GB (occurrence: GB)
  Receive Date: 20130605
  Receipt Date: 20130605
  Transmission Date: 20140414
  Serious: Yes (Hospitalization, Other)
  Sender: FDA-Public Use
  Company Number: GB-MERCK-1306GBR000805

PATIENT
  Age: 47 Year
  Sex: Female

DRUGS (5)
  1. JANUVIA [Suspect]
     Dosage: 1 DF, QD
     Route: 048
     Dates: start: 20130508
  2. ASPIRIN [Concomitant]
     Dosage: 75 MG, QD
  3. ATORVASTATIN [Concomitant]
     Dosage: 40 MG, QD
  4. GLIMEPIRIDE [Concomitant]
     Dosage: 6 MG, QD
  5. METFORMIN [Concomitant]
     Dosage: 500 MG, BID

REACTIONS (4)
  - Loss of consciousness [Unknown]
  - Disorientation [Unknown]
  - Hyperglycaemia [Unknown]
  - Heart rate decreased [Unknown]
